FAERS Safety Report 19204205 (Version 1)
Quarter: 2021Q2

REPORT INFORMATION
  Report Type: Spontaneous
  Country: US (occurrence: US)
  Receive Date: 20210503
  Receipt Date: 20210503
  Transmission Date: 20210717
  Serious: Yes (Death, Other)
  Sender: FDA-Public Use
  Company Number: US-SA-2021SA143945

PATIENT
  Age: 62 Year
  Sex: Male

DRUGS (1)
  1. JEVTANA [Suspect]
     Active Substance: CABAZITAXEL
     Indication: NEOPLASM MALIGNANT
     Dosage: 44 MG, Q3W

REACTIONS (1)
  - Death [Fatal]

NARRATIVE: CASE EVENT DATE: 20210103
